FAERS Safety Report 5832633-X (Version None)
Quarter: 2008Q3

REPORT INFORMATION
  Report Type: 
  Country: None (occurrence: None)
  Receive Date: 20080804
  Receipt Date: 20080725
  Transmission Date: 20090109
  Serious: Yes (Hospitalization, Other)
  Sender: FDA-Public Use
  Company Number: PHHY2008JP09075

PATIENT
  Sex: Male
  Weight: 69 kg

DRUGS (8)
  1. VOLTAREN [Suspect]
     Indication: SINUSITIS
     Dosage: UNK
     Dates: start: 20060101
  2. PREDNISOLONE [Concomitant]
     Indication: HYPERTHYROIDISM
     Dosage: 10 MG, UNK
  3. MERCAZOLE [Concomitant]
     Indication: HYPERTHYROIDISM
     Dosage: 45 MG, UNK
     Route: 048
  4. INDERAL [Concomitant]
     Indication: HYPERTHYROIDISM
     Dosage: 30 MG, UNK
     Route: 048
  5. LUGOL CAP [Concomitant]
     Indication: HYPERTHYROIDISM
     Dosage: 10 ML, UNK
     Route: 048
  6. GOODMIN [Concomitant]
     Indication: INSOMNIA
     Dosage: 0.25 MG, UNK
     Route: 048
  7. MUCOSTA [Concomitant]
     Indication: GASTRITIS
     Dosage: 300 MG, UNK
     Route: 048
  8. ZYRTEC [Concomitant]
     Indication: SINUSITIS
     Dosage: 10 MG, UNK
     Route: 048

REACTIONS (10)
  - ALANINE AMINOTRANSFERASE INCREASED [None]
  - BLOOD CREATININE INCREASED [None]
  - BLOOD UREA INCREASED [None]
  - HAEMATOCRIT DECREASED [None]
  - HAEMOGLOBIN DECREASED [None]
  - NAUSEA [None]
  - PYREXIA [None]
  - THYROIDECTOMY [None]
  - THYROTOXIC CRISIS [None]
  - TUBULOINTERSTITIAL NEPHRITIS [None]
